FAERS Safety Report 13089271 (Version 1)
Quarter: 2017Q1

REPORT INFORMATION
  Report Type: Spontaneous
  Country: US (occurrence: US)
  Receive Date: 20170105
  Receipt Date: 20170105
  Transmission Date: 20170428
  Serious: No
  Sender: FDA-Public Use
  Company Number: US-GRANULES INDIA LIMITED-1061569

PATIENT
  Age: 73 Year
  Sex: Female
  Weight: 92.27 kg

DRUGS (2)
  1. METFORMIN HYDROCHLORIDE. [Suspect]
     Active Substance: METFORMIN HYDROCHLORIDE
     Indication: TYPE 2 DIABETES MELLITUS
  2. PENICILLIN [Concomitant]
     Active Substance: PENICILLIN

REACTIONS (3)
  - Myalgia [Unknown]
  - Musculoskeletal stiffness [Unknown]
  - Arthralgia [Unknown]
